FAERS Safety Report 8622748 (Version 2)
Quarter: 2013Q2

REPORT INFORMATION
  Report Type: Spontaneous
  Country: US (occurrence: US)
  Receive Date: 20120619
  Receipt Date: 20130523
  Transmission Date: 20140414
  Serious: No
  Sender: FDA-Public Use
  Company Number: US-ASTRAZENECA-2012SE38019

PATIENT
  Sex: Female

DRUGS (2)
  1. PULMICORT FLEXHALER [Suspect]
     Dosage: 360 MCG TWO TIMES A DAY
     Route: 055
     Dates: start: 20120305
  2. PULMICORT FLEXHALER [Suspect]
     Route: 055

REACTIONS (1)
  - Respiratory disorder [Unknown]
